FAERS Safety Report 21638148 (Version 1)
Quarter: 2022Q4

REPORT INFORMATION
  Report Type: Report from Study
  Country: US (occurrence: US)
  Receive Date: 20221124
  Receipt Date: 20221124
  Transmission Date: 20230112
  Serious: Yes (Other)
  Sender: FDA-Public Use
  Company Number: US-002147023-NVSC2022US260084

PATIENT
  Sex: Female

DRUGS (2)
  1. COSENTYX [Suspect]
     Active Substance: SECUKINUMAB
     Indication: Psoriatic arthropathy
     Dosage: 150 MG, Q2W
     Route: 058
     Dates: start: 202106
  2. COSENTYX [Suspect]
     Active Substance: SECUKINUMAB
     Dosage: 300 MG
     Route: 065
     Dates: start: 20211009

REACTIONS (19)
  - Rotator cuff syndrome [Unknown]
  - Plantar fasciitis [Unknown]
  - Tendon pain [Unknown]
  - Small fibre neuropathy [Unknown]
  - Hypoaesthesia [Unknown]
  - Paraesthesia [Unknown]
  - Raynaud^s phenomenon [Unknown]
  - Peripheral swelling [Unknown]
  - Erythema [Unknown]
  - Arthritis [Unknown]
  - Pain in extremity [Unknown]
  - Arthralgia [Unknown]
  - Headache [Unknown]
  - Tachycardia [Unknown]
  - Fatigue [Unknown]
  - Poor quality sleep [Unknown]
  - Vitamin B12 decreased [Unknown]
  - Pain [Not Recovered/Not Resolved]
  - Musculoskeletal stiffness [Not Recovered/Not Resolved]
